FAERS Safety Report 7278112-7 (Version None)
Quarter: 2011Q1

REPORT INFORMATION
  Report Type: 
  Country: None (occurrence: None)
  Receive Date: 20110207
  Receipt Date: 20110201
  Transmission Date: 20110831
  Serious: Yes (Other)
  Sender: FDA-Public Use
  Company Number: VE-BRISTOL-MYERS SQUIBB COMPANY-15522949

PATIENT
  Age: 87 Year
  Sex: Female

DRUGS (2)
  1. ENTECAVIR [Suspect]
  2. ADEFOVIR DIPIVOXIL KIT [Suspect]

REACTIONS (2)
  - RENAL IMPAIRMENT [None]
  - VIRAL LOAD INCREASED [None]
